FAERS Safety Report 12176115 (Version 3)
Quarter: 2016Q3

REPORT INFORMATION
  Report Type: Spontaneous
  Country: US (occurrence: US)
  Receive Date: 20160314
  Receipt Date: 20160816
  Transmission Date: 20161109
  Serious: Yes (Death)
  Sender: FDA-Public Use
  Company Number: US-MALLINCKRODT-T201600766

PATIENT
  Age: 52 Year
  Sex: Female

DRUGS (9)
  1. ASPIRIN. [Concomitant]
     Active Substance: ASPIRIN
     Indication: ISCHAEMIC HEART DISEASE PROPHYLAXIS
  2. ASPIRIN. [Concomitant]
     Active Substance: ASPIRIN
     Indication: BUNDLE BRANCH BLOCK LEFT
  3. FENTANYL CITRATE. [Suspect]
     Active Substance: FENTANYL CITRATE
     Indication: PELVIC PAIN
     Dosage: 1200-1600 MCG Q4 HOURS PRN (MAX 4 PER DAY)
     Route: 002
     Dates: start: 20061016, end: 20150426
  4. COREG [Concomitant]
     Active Substance: CARVEDILOL
     Indication: CARDIOMYOPATHY
  5. LISINOPRIL. [Concomitant]
     Active Substance: LISINOPRIL
     Indication: HYPERTENSION
  6. FENTANYL CITRATE. [Suspect]
     Active Substance: FENTANYL CITRATE
     Indication: BREAKTHROUGH PAIN
     Dosage: 1200-1600 MCG Q4 HOURS PRN (MAX 4 PER DAY)
     Route: 002
     Dates: start: 200412, end: 2005
  7. FERROUS SULFATE. [Concomitant]
     Active Substance: FERROUS SULFATE
     Indication: ANAEMIA
  8. EFFEXOR [Concomitant]
     Active Substance: VENLAFAXINE HYDROCHLORIDE
     Indication: DEPRESSION
  9. DURAGESIC [Concomitant]
     Active Substance: FENTANYL
     Dosage: 100 MCG PATCH EVERY 72 HOURS

REACTIONS (2)
  - Arteriosclerosis [Fatal]
  - Myocardial infarction [Fatal]

NARRATIVE: CASE EVENT DATE: 20150426
